FAERS Safety Report 9202333 (Version 1)
Quarter: 2013Q2

REPORT INFORMATION
  Report Type: Report from Study
  Country: US (occurrence: US)
  Receive Date: 20130401
  Receipt Date: 20130401
  Transmission Date: 20140414
  Serious: Yes (Hospitalization)
  Sender: FDA-Public Use
  Company Number: US-BRISTOL-MYERS SQUIBB COMPANY-14258438

PATIENT
  Age: 55 Year
  Sex: Male

DRUGS (3)
  1. IPILIMUMAB [Suspect]
     Indication: MALIGNANT MELANOMA
     Route: 042
     Dates: start: 20080529, end: 20080619
  2. PRAVASTATIN SODIUM [Concomitant]
  3. LORAZEPAM [Concomitant]
     Dates: start: 20080619

REACTIONS (1)
  - Colitis [Recovered/Resolved]
